FAERS Safety Report 16723940 (Version 3)
Quarter: 2019Q3

REPORT INFORMATION
  Report Type: Spontaneous
  Country: US (occurrence: US)
  Receive Date: 20190821
  Receipt Date: 20190926
  Transmission Date: 20191005
  Serious: Yes (Other)
  Sender: FDA-Public Use
  Company Number: US-IGSA-SR10008947

PATIENT
  Age: 70 Year
  Sex: Male
  Weight: 91.63 kg

DRUGS (17)
  1. LEXAPRO [Concomitant]
     Active Substance: ESCITALOPRAM OXALATE
  2. VITAMIN D3 [Concomitant]
     Active Substance: CHOLECALCIFEROL
  3. BANOPHEN [Concomitant]
     Active Substance: DIPHENHYDRAMINE HYDROCHLORIDE
     Indication: ADVERSE DRUG REACTION
     Dosage: UNK
     Dates: start: 20190711
  4. LYRICA [Concomitant]
     Active Substance: PREGABALIN
  5. PREDNISONE. [Concomitant]
     Active Substance: PREDNISONE
  6. ASPIRIN (E.C.) [Concomitant]
     Active Substance: ASPIRIN
  7. RITUXAN [Concomitant]
     Active Substance: RITUXIMAB
  8. BENADRYL [Concomitant]
     Active Substance: DIPHENHYDRAMINE HYDROCHLORIDE
     Indication: ADVERSE DRUG REACTION
     Dosage: 50 MG, BID
     Dates: start: 20190711
  9. FISH OIL [Concomitant]
     Active Substance: FISH OIL
  10. NORMAL SALINE [Concomitant]
     Active Substance: SODIUM CHLORIDE
     Indication: ADVERSE DRUG REACTION
     Dosage: UNK
     Dates: start: 20190711
  11. GAMUNEX-C [Suspect]
     Active Substance: HUMAN IMMUNOGLOBULIN G
     Indication: CHRONIC INFLAMMATORY DEMYELINATING POLYRADICULONEUROPATHY
     Dosage: 80 G, UNK
     Dates: start: 20190711, end: 20190711
  12. SOTALOL HCL [Concomitant]
     Active Substance: SOTALOL
  13. VITAMIN B12 [Concomitant]
     Active Substance: CYANOCOBALAMIN
  14. ELIQUIS [Concomitant]
     Active Substance: APIXABAN
  15. ZINC GLUCONATE [Concomitant]
     Active Substance: ZINC GLUCONATE
  16. EPINEPHRINE. [Concomitant]
     Active Substance: EPINEPHRINE
     Indication: ADVERSE DRUG REACTION
     Dosage: UNK
     Dates: start: 20190711
  17. MAPAP [Concomitant]
     Active Substance: ACETAMINOPHEN
     Indication: ADVERSE DRUG REACTION
     Dosage: UNK
     Dates: start: 20190711

REACTIONS (3)
  - Rash [Unknown]
  - Chest discomfort [Recovering/Resolving]
  - Pruritus [Unknown]

NARRATIVE: CASE EVENT DATE: 20190711
